FAERS Safety Report 6298597-2 (Version None)
Quarter: 2009Q3

REPORT INFORMATION
  Report Type: 
  Country: None (occurrence: None)
  Receive Date: 20090805
  Receipt Date: 20090729
  Transmission Date: 20100115
  Serious: Yes (Other)
  Sender: FDA-Public Use
  Company Number: US-AMGEN-QUU357796

PATIENT
  Sex: Female

DRUGS (4)
  1. ENBREL [Suspect]
     Indication: PSORIASIS
     Dates: start: 20070101
  2. ORAL CONTRACEPTIVE NOS [Concomitant]
  3. IBUPROFEN [Concomitant]
  4. HUMIRA [Concomitant]

REACTIONS (4)
  - BENIGN INTRACRANIAL HYPERTENSION [None]
  - GALLBLADDER OPERATION [None]
  - SUNBURN [None]
  - SWELLING FACE [None]
